FAERS Safety Report 5346166-0 (Version None)
Quarter: 2007Q2

REPORT INFORMATION
  Report Type: 
  Country: None (occurrence: None)
  Receive Date: 20070605
  Receipt Date: 20070530
  Transmission Date: 20071010
  Serious: Yes (Death)
  Sender: FDA-Public Use
  Company Number: JP-JNJFOC-20070506712

PATIENT
  Age: 70 Year
  Sex: Male

DRUGS (5)
  1. RISPERDAL [Suspect]
     Indication: RESTLESSNESS
     Route: 048
  2. LEVOFLOXACIN [Concomitant]
     Route: 048
  3. MOBIC [Concomitant]
     Route: 048
  4. OXYCONTIN [Concomitant]
     Route: 048
  5. SEDATIVES [Concomitant]

REACTIONS (1)
  - DEATH [None]
